FAERS Safety Report 9756566 (Version 1)
Quarter: 2013Q4

REPORT INFORMATION
  Report Type: Spontaneous
  Country: US (occurrence: US)
  Receive Date: 20131213
  Receipt Date: 20131213
  Transmission Date: 20140711
  Serious: No
  Sender: FDA-Public Use
  Company Number: US-GLAXOSMITHKLINE-A1046261A

PATIENT
  Age: 61 Year
  Sex: Male

DRUGS (2)
  1. NICODERM CQ CLEAR 21MG [Suspect]
     Indication: EX-TOBACCO USER
  2. MULTIPLE MEDICATIONS [Concomitant]

REACTIONS (3)
  - Nightmare [Recovered/Resolved]
  - Hyperhidrosis [Recovered/Resolved]
  - Intentional drug misuse [Unknown]
